FAERS Safety Report 12091528 (Version 1)
Quarter: 2016Q1

REPORT INFORMATION
  Report Type: Spontaneous
  Country: FR (occurrence: FR)
  Receive Date: 20160218
  Receipt Date: 20160218
  Transmission Date: 20160526
  Serious: Yes (Hospitalization)
  Sender: FDA-Public Use
  Company Number: PHHY2016FR019721

PATIENT
  Age: 83 Year
  Sex: Female

DRUGS (3)
  1. LOVENOX [Concomitant]
     Active Substance: ENOXAPARIN SODIUM
     Indication: THROMBOCYTOPENIA
     Dosage: 6000 IU, BID
     Route: 065
     Dates: end: 20160105
  2. AMOXICILLIN CLAVULANIC ACID SANDOZ [Suspect]
     Active Substance: AMOXICILLIN\CLAVULANIC ACID
     Indication: ERYSIPELAS
     Dosage: 1 G, TID
     Route: 048
     Dates: start: 20160104, end: 20160115
  3. KARDEGIC [Concomitant]
     Active Substance: ASPIRIN LYSINE
     Indication: PRODUCT USED FOR UNKNOWN INDICATION
     Dosage: 160 MG, QD
     Route: 065

REACTIONS (3)
  - Dermatitis exfoliative [Recovered/Resolved]
  - Fungal infection [Unknown]
  - Petechiae [Unknown]

NARRATIVE: CASE EVENT DATE: 20160109
